FAERS Safety Report 25788019 (Version 2)
Quarter: 2025Q3

REPORT INFORMATION
  Report Type: Spontaneous
  Country: US (occurrence: US)
  Receive Date: 20250910
  Receipt Date: 20250920
  Transmission Date: 20251021
  Serious: Yes (Hospitalization)
  Sender: ABBVIE
  Company Number: US-ABBVIE-6451962

PATIENT
  Age: 35 Year
  Sex: Male
  Weight: 113 kg

DRUGS (2)
  1. VRAYLAR [Suspect]
     Active Substance: CARIPRAZINE
     Indication: Bipolar disorder
     Dosage: FREQUENCY: NIGHTLY
     Route: 048
     Dates: start: 2018
  2. VRAYLAR [Suspect]
     Active Substance: CARIPRAZINE
     Indication: Bipolar disorder
     Dosage: FREQUENCY: NIGHTLY
     Route: 048
     Dates: start: 2018

REACTIONS (2)
  - Hospitalisation [Unknown]
  - Gambling disorder [Not Recovered/Not Resolved]

NARRATIVE: CASE EVENT DATE: 20240409
